FAERS Safety Report 19101758 (Version 2)
Quarter: 2021Q2

REPORT INFORMATION
  Report Type: Spontaneous
  Country: US (occurrence: US)
  Receive Date: 20210407
  Receipt Date: 20210526
  Transmission Date: 20210717
  Serious: Yes (Other)
  Sender: FDA-Public Use
  Company Number: US-COOPERSURGICAL, INC.-US-2021CPS000813

PATIENT
  Age: 29 Year
  Sex: Female
  Weight: 66.21 kg

DRUGS (1)
  1. PARAGARD T 380A [Suspect]
     Active Substance: COPPER
     Indication: CONTRACEPTION
     Dosage: UNK
     Route: 015
     Dates: start: 20210212, end: 20210319

REACTIONS (4)
  - Device dislocation [Recovered/Resolved]
  - Embedded device [Recovered/Resolved]
  - Genital cyst [Unknown]
  - Anal fissure [Unknown]

NARRATIVE: CASE EVENT DATE: 2021
